FAERS Safety Report 7226984-4 (Version None)
Quarter: 2011Q1

REPORT INFORMATION
  Report Type: 
  Country: None (occurrence: None)
  Receive Date: 20110114
  Receipt Date: 20110103
  Transmission Date: 20110831
  Serious: Yes (Hospitalization, Other)
  Sender: FDA-Public Use
  Company Number: FR-ELI_LILLY_AND_COMPANY-FR201012001237

PATIENT
  Sex: Male
  Weight: 114 kg

DRUGS (8)
  1. TERCIAN [Concomitant]
     Indication: PSYCHOTIC DISORDER
     Dosage: UNK, UNKNOWN
     Route: 030
  2. TERCIAN [Concomitant]
     Dosage: 900 MG, DAILY (1/D)
     Route: 048
     Dates: start: 20101129
  3. CLOZAPINE [Concomitant]
     Dosage: 50 MG, DAILY (1/D)
     Route: 048
     Dates: start: 20101011
  4. LEPTICUR [Concomitant]
     Dosage: 10 MG, DAILY (1/D)
     Route: 048
     Dates: start: 20101108
  5. ZYPADHERA [Suspect]
     Indication: SCHIZOPHRENIA
     Dosage: 300 MG, EVERY 2 WEEKS
     Route: 058
     Dates: start: 20101116
  6. LOXAPAC [Concomitant]
     Dosage: UNK, UNKNOWN
     Route: 030
  7. ZYPREXA [Suspect]
     Indication: PSYCHOTIC DISORDER
     Dosage: 40 MG, DAILY (1/D)
     Route: 048
  8. TRANXENE [Concomitant]
     Route: 048
     Dates: start: 20101203

REACTIONS (4)
  - INJECTION SITE NECROSIS [None]
  - PSYCHOTIC DISORDER [None]
  - OVERDOSE [None]
  - AGITATION [None]
